FAERS Safety Report 14925306 (Version 2)
Quarter: 2018Q3

REPORT INFORMATION
  Report Type: Report from Study
  Country: JP (occurrence: JP)
  Receive Date: 20180522
  Receipt Date: 20180904
  Transmission Date: 20181010
  Serious: Yes (Other)
  Sender: FDA-Public Use
  Company Number: JP-INCYTE CORPORATION-2018IN000406

PATIENT

DRUGS (3)
  1. JAKAVI [Suspect]
     Active Substance: RUXOLITINIB
     Indication: POLYCYTHAEMIA VERA
     Dosage: 10 MG, QD
     Route: 048
     Dates: start: 20170120, end: 20170125
  2. JAKAVI [Suspect]
     Active Substance: RUXOLITINIB
     Dosage: 20 MG, QD
     Route: 048
     Dates: start: 20170126
  3. HYDREA [Concomitant]
     Active Substance: HYDROXYUREA
     Indication: POLYCYTHAEMIA VERA
     Dosage: 500 MG, UNK
     Route: 048

REACTIONS (3)
  - Hyperkalaemia [Recovering/Resolving]
  - Blood creatinine increased [Not Recovered/Not Resolved]
  - Infected dermal cyst [Recovering/Resolving]

NARRATIVE: CASE EVENT DATE: 20170420
